FAERS Safety Report 6260804-X (Version None)
Quarter: 2009Q3

REPORT INFORMATION
  Report Type: 
  Country: None (occurrence: None)
  Receive Date: 20090707
  Receipt Date: 20090624
  Transmission Date: 20100115
  Serious: Yes (Hospitalization)
  Sender: FDA-Public Use
  Company Number: 8048501

PATIENT
  Age: 86 Year
  Sex: Female

DRUGS (8)
  1. KEPPRA [Suspect]
     Indication: MYOCLONUS
     Dosage: 500 MG 1/D PO
     Route: 048
     Dates: start: 20090227, end: 20090227
  2. KEPPRA [Suspect]
     Indication: MYOCLONUS
     Dosage: 1000 MG 1/D PO
     Route: 048
     Dates: start: 20090228, end: 20090228
  3. KEPPRA [Suspect]
     Indication: MYOCLONUS
     Dosage: 2000 MG 1/D PO
     Route: 048
     Dates: start: 20090301, end: 20090305
  4. AGGRENOX [Concomitant]
  5. DELIX /00885601/ [Concomitant]
  6. L-THYROXIN [Concomitant]
  7. NEXIUM [Concomitant]
  8. SIMVAHEXAL [Concomitant]

REACTIONS (7)
  - CONFUSIONAL STATE [None]
  - DELIRIUM [None]
  - DELUSION [None]
  - IMPULSIVE BEHAVIOUR [None]
  - JUDGEMENT IMPAIRED [None]
  - PERSONALITY CHANGE [None]
  - SLEEP DISORDER [None]
